FAERS Safety Report 7130581-9 (Version None)
Quarter: 2010Q4

REPORT INFORMATION
  Report Type: 
  Country: None (occurrence: None)
  Receive Date: 20101201
  Receipt Date: 20101122
  Transmission Date: 20110411
  Serious: Yes (Hospitalization)
  Sender: FDA-Public Use
  Company Number: FR-SANOFI-AVENTIS-2010SA071543

PATIENT
  Age: 43 Year
  Sex: Male
  Weight: 58 kg

DRUGS (8)
  1. TAXOTERE [Suspect]
     Route: 041
     Dates: start: 20100506, end: 20100506
  2. TAXOTERE [Suspect]
     Route: 041
     Dates: start: 20100527, end: 20100527
  3. CISPLATINE DAKOTA PHARM [Suspect]
     Route: 042
     Dates: start: 20100506, end: 20100506
  4. CISPLATINE DAKOTA PHARM [Suspect]
     Route: 042
     Dates: start: 20100527, end: 20100527
  5. FLUOROURACILE DAKOTA PHARM [Suspect]
     Route: 041
     Dates: start: 20100803, end: 20100807
  6. FLUOROURACILE DAKOTA PHARM [Suspect]
     Route: 041
     Dates: start: 20100506, end: 20100510
  7. ELOXATIN [Suspect]
     Route: 041
     Dates: start: 20100705, end: 20100705
  8. ELOXATIN [Suspect]
     Route: 041
     Dates: start: 20100810, end: 20100810

REACTIONS (1)
  - GASTROINTESTINAL ANASTOMOTIC LEAK [None]
